FAERS Safety Report 9398624 (Version 2)
Quarter: 2013Q3

REPORT INFORMATION
  Report Type: Spontaneous
  Country: US (occurrence: US)
  Receive Date: 20130712
  Receipt Date: 20130808
  Transmission Date: 20140515
  Serious: Yes (Hospitalization)
  Sender: FDA-Public Use
  Company Number: US-B.I. PHARMACEUTICALS,INC./RIDGEFIELD-2013-BI-20197BP

PATIENT
  Sex: Male

DRUGS (15)
  1. SPIRIVA [Suspect]
     Route: 055
  2. ZOLOFT 100 MG TABS (SERTRALINE HCL) [Concomitant]
  3. ASPIRIN 81 MG EC TAB [Concomitant]
     Indication: PROPHYLAXIS
  4. SENTURY -VITE TAB [Concomitant]
  5. FISH OIL 1000MG CAPS [Concomitant]
     Indication: PROPHYLAXIS
  6. OMEPRAZOLE [Concomitant]
     Indication: GASTROOESOPHAGEAL REFLUX DISEASE
  7. PLAVIX 75MG TABS [Concomitant]
     Indication: ANTICOAGULANT THERAPY
     Dosage: 75 MG
  8. METOPROLOL TARTARATE 25MG TABS [Concomitant]
     Dosage: DAILY DOSE:1/2 TABLET
  9. DETROL LA [Concomitant]
     Indication: BLADDER DISORDER
  10. DIOVAN 80MG TABS [Concomitant]
     Indication: BLOOD PRESSURE
     Dosage: 80 MG
  11. FUROSEMIDE 40MG TABS [Concomitant]
     Indication: POLYURIA
  12. POTASSIUM CHLORIDE CRYS CR 20 MEQ TBCR [Concomitant]
     Dosage: 20 MEQ
  13. HYDROCODONE-ACETAMINOPHEN 5-325 MG TABS [Concomitant]
     Indication: PAIN
     Dosage: DAILY DOSE: 5-325MG
  14. FLOMAX 0.4 MG CAPS(TAMSULOSIN) [Concomitant]
     Indication: BLADDER DISORDER
  15. LOVASTATIN 20MG TABS [Concomitant]
     Indication: BLOOD CHOLESTEROL
     Dosage: 20 MG

REACTIONS (1)
  - Pneumonia [Recovered/Resolved]
